FAERS Safety Report 9701086 (Version 1)
Quarter: 2013Q4

REPORT INFORMATION
  Report Type: Spontaneous
  Country: US (occurrence: None)
  Receive Date: 20131120
  Receipt Date: 20131120
  Transmission Date: 20140711
  Serious: No
  Sender: FDA-Public Use
  Company Number: None

PATIENT
  Age: 48 None
  Sex: Female

DRUGS (1)
  1. TOPROL XL [Suspect]
     Indication: ESSENTIAL HYPERTENSION
     Dosage: 30 TP Q-DAY ESSENTIAL HYPERTENSION
     Route: 048

REACTIONS (2)
  - Hypoaesthesia [None]
  - Blood pressure inadequately controlled [None]
